FAERS Safety Report 5601456-9 (Version None)
Quarter: 2008Q1

REPORT INFORMATION
  Report Type: 
  Country: None (occurrence: None)
  Receive Date: 20080124
  Receipt Date: 20080115
  Transmission Date: 20080703
  Serious: Yes (Other)
  Sender: FDA-Public Use
  Company Number: FR-ASTRAZENECA-2007CG01610

PATIENT
  Age: 26544 Day
  Sex: Female
  Weight: 49 kg

DRUGS (3)
  1. NOLVADEX [Suspect]
     Indication: BREAST CANCER FEMALE
     Route: 048
     Dates: start: 20071026, end: 20070101
  2. ARIMIDEX [Concomitant]
     Indication: BREAST CANCER FEMALE
     Route: 048
     Dates: start: 20060901, end: 20070801
  3. LEVOTHYROX [Concomitant]
     Indication: AUTOIMMUNE THYROIDITIS
     Route: 048
     Dates: start: 19970101

REACTIONS (2)
  - MENTAL DISORDER [None]
  - OBSESSIVE THOUGHTS [None]
